FAERS Safety Report 25633291 (Version 1)
Quarter: 2025Q3

REPORT INFORMATION
  Report Type: Spontaneous
  Country: US (occurrence: US)
  Receive Date: 20250801
  Receipt Date: 20250801
  Transmission Date: 20251021
  Serious: Yes (Life-Threatening, Hospitalization)
  Sender: MYLAN
  Company Number: US-MYLANLABS-2025M1063920

PATIENT
  Age: 43 Year
  Sex: Male

DRUGS (4)
  1. LEVETIRACETAM [Suspect]
     Active Substance: LEVETIRACETAM
     Indication: Myoclonus
  2. CLONAZEPAM [Suspect]
     Active Substance: CLONAZEPAM
     Indication: Myoclonus
  3. PROPOFOL [Concomitant]
     Active Substance: PROPOFOL
     Indication: Sedative therapy
  4. FENTANYL [Concomitant]
     Active Substance: FENTANYL
     Indication: Sedative therapy

REACTIONS (1)
  - Drug ineffective [Unknown]
